FAERS Safety Report 7047264-6 (Version None)
Quarter: 2010Q4

REPORT INFORMATION
  Report Type: 
  Country: None (occurrence: None)
  Receive Date: 20101015
  Receipt Date: 20100816
  Transmission Date: 20110411
  Serious: Yes (Death, Other)
  Sender: FDA-Public Use
  Company Number: NL-ROCHE-726724

PATIENT

DRUGS (3)
  1. AVASTIN [Suspect]
     Indication: RENAL CELL CARCINOMA
     Dosage: FORM, DOSE, FREQUENCY: UNREPORTED.
     Route: 042
     Dates: start: 20090101
  2. TORISEL [Suspect]
     Indication: RENAL CELL CARCINOMA
     Dosage: DOSE, FORM, FREQUENCY: UNREPORTED.
     Route: 065
  3. INTERFERON [Suspect]
     Indication: RENAL CELL CARCINOMA
     Dosage: ROUTE, FORM, DOSE, FREQUENCY: NOT REPORTED.
     Route: 065
     Dates: start: 20090101

REACTIONS (2)
  - DEATH [None]
  - MALIGNANT NEOPLASM PROGRESSION [None]
